FAERS Safety Report 9672959 (Version 2)
Quarter: 2013Q4

REPORT INFORMATION
  Report Type: Spontaneous
  Country: US (occurrence: US)
  Receive Date: 20131106
  Receipt Date: 20131106
  Transmission Date: 20140711
  Serious: No
  Sender: FDA-Public Use
  Company Number: US-AMGEN-USASP2013059930

PATIENT
  Age: 0 Day
  Sex: Male

DRUGS (5)
  1. ENBREL [Suspect]
     Indication: PRODUCT USED FOR UNKNOWN INDICATION
     Dosage: 50 MG, QWK
     Route: 063
     Dates: start: 20010401
  2. FOLIC ACID [Concomitant]
     Dosage: UNK UNK, QD
     Route: 064
     Dates: start: 19980601, end: 20060101
  3. PRENATAL VITAMINS                  /07499601/ [Concomitant]
     Dosage: UNK UNK, BID
     Route: 064
     Dates: start: 19980601, end: 20060101
  4. CALCIUM [Concomitant]
     Dosage: 600 MG, TID
     Route: 064
     Dates: start: 19980601
  5. IRON [Concomitant]
     Dosage: UNK UNK, BID
     Route: 064
     Dates: start: 20010601, end: 20040904

REACTIONS (4)
  - Breast feeding [Recovered/Resolved]
  - Disturbance in attention [Unknown]
  - Dyslexia [Unknown]
  - Blood bilirubin abnormal [Unknown]
